FAERS Safety Report 8019500-0 (Version None)
Quarter: 2012Q1

REPORT INFORMATION
  Report Type: 
  Country: None (occurrence: None)
  Receive Date: 20120103
  Receipt Date: 20111230
  Transmission Date: 20120608
  Serious: No
  Sender: FDA-Public Use
  Company Number: PHEH2011US010735

PATIENT
  Sex: Male
  Weight: 100.2 kg

DRUGS (9)
  1. FUROSEMIDE [Concomitant]
  2. TASIGNA [Suspect]
     Dosage: 400 MG, DAILY
     Route: 048
  3. NORVASC [Concomitant]
  4. EXFORGE [Concomitant]
  5. TRIAMCINOLONE [Concomitant]
  6. TASIGNA [Suspect]
     Dosage: 200 MG, BID
  7. ALLOPURINOL [Concomitant]
  8. TASIGNA [Suspect]
     Indication: CHRONIC MYELOID LEUKAEMIA
     Dosage: 400 MG, TWICE DAILY
     Route: 048
     Dates: start: 20111026
  9. MULTI-VITAMINS [Concomitant]

REACTIONS (4)
  - HEADACHE [None]
  - ABDOMINAL DISCOMFORT [None]
  - NAUSEA [None]
  - DYSPEPSIA [None]
